FAERS Safety Report 4886394-1 (Version None)
Quarter: 2006Q1

REPORT INFORMATION
  Report Type: 
  Country: None (occurrence: None)
  Receive Date: 20060120
  Receipt Date: 20051005
  Transmission Date: 20060701
  Serious: Yes (Hospitalization)
  Sender: FDA-Public Use
  Company Number: US-MERCK-0510USA05590

PATIENT
  Age: 43 Year
  Sex: Female
  Weight: 71 kg

DRUGS (1)
  1. VIOXX [Suspect]
     Indication: BACK PAIN
     Route: 048
     Dates: start: 20000101, end: 20020101

REACTIONS (10)
  - CHEST PAIN [None]
  - DEPRESSION [None]
  - DYSPNOEA [None]
  - EMOTIONAL DISTRESS [None]
  - HEART RATE INCREASED [None]
  - HYPERHIDROSIS [None]
  - MYOCARDIAL ISCHAEMIA [None]
  - SENSATION OF HEAVINESS [None]
  - STRESS [None]
  - UTERINE LEIOMYOMA [None]
